FAERS Safety Report 10639794 (Version 1)
Quarter: 2014Q4

REPORT INFORMATION
  Report Type: Spontaneous
  Country: US (occurrence: None)
  Receive Date: 20141205
  Receipt Date: 20141205
  Transmission Date: 20150529
  Serious: Yes (Other)
  Sender: FDA-Public Use
  Company Number: None

PATIENT
  Age: 60 Year
  Sex: Female
  Weight: 97.52 kg

DRUGS (1)
  1. BELVIQ [Suspect]
     Active Substance: LORCASERIN HYDROCHLORIDE
     Route: 048

REACTIONS (8)
  - Fatigue [None]
  - Mental impairment [None]
  - Movement disorder [None]
  - Headache [None]
  - Arthralgia [None]
  - Myalgia [None]
  - Lethargy [None]
  - Back pain [None]

NARRATIVE: CASE EVENT DATE: 20141127
